FAERS Safety Report 6609193-9 (Version None)
Quarter: 2010Q1

REPORT INFORMATION
  Report Type: 
  Country: None (occurrence: None)
  Receive Date: 20100224
  Receipt Date: 20100219
  Transmission Date: 20100710
  Serious: Yes (Death, Hospitalization)
  Sender: FDA-Public Use
  Company Number: 2010000907

PATIENT
  Age: 29 Year
  Sex: Male

DRUGS (5)
  1. FENTORA [Suspect]
     Indication: CANCER PAIN
     Dosage: 4800 MCG (800 MCG, 1 IN 4 HR), BU
     Route: 002
  2. FENTANYL [Concomitant]
  3. LORAZEPAM [Concomitant]
  4. FENTOIN (PHENYTOIN SODIUM) [Concomitant]
  5. DILAUDID [Concomitant]

REACTIONS (2)
  - GASTRIC CANCER [None]
  - MALIGNANT NEOPLASM PROGRESSION [None]
